FAERS Safety Report 8199113-0 (Version None)
Quarter: 2012Q1

REPORT INFORMATION
  Report Type: 
  Country: None (occurrence: None)
  Receive Date: 20120309
  Receipt Date: 20120223
  Transmission Date: 20120608
  Serious: Yes (Hospitalization)
  Sender: FDA-Public Use
  Company Number: NL-MEDIMMUNE-MEDI-0015006

PATIENT
  Sex: Male
  Weight: 7.45 kg

DRUGS (3)
  1. SYNAGIS [Suspect]
     Indication: PREMATURE BABY
     Route: 030
     Dates: start: 20111027, end: 20120119
  2. SYNAGIS [Suspect]
     Route: 030
     Dates: start: 20120216, end: 20120216
  3. ALBUTEROL [Concomitant]

REACTIONS (5)
  - INSOMNIA [None]
  - PRODUCTIVE COUGH [None]
  - NASOPHARYNGITIS [None]
  - PYREXIA [None]
  - COUGH [None]
